FAERS Safety Report 23573248 (Version 6)
Quarter: 2025Q3

REPORT INFORMATION
  Report Type: Report from Study
  Country: CA (occurrence: CA)
  Receive Date: 20240228
  Receipt Date: 20250721
  Transmission Date: 20251021
  Serious: Yes (Hospitalization, Other)
  Sender: TAKEDA
  Company Number: CA-TAKEDA-2024TUS017786

PATIENT
  Age: 71 Year
  Sex: Male

DRUGS (8)
  1. HUMAN IMMUNOGLOBULIN G [Suspect]
     Active Substance: HUMAN IMMUNOGLOBULIN G
     Indication: Secondary immunodeficiency
     Dosage: 10 GRAM, 1/WEEK
     Dates: start: 20230725
  2. HUMAN IMMUNOGLOBULIN G [Suspect]
     Active Substance: HUMAN IMMUNOGLOBULIN G
     Dosage: 10 GRAM, 1/WEEK
  3. HUMAN IMMUNOGLOBULIN G [Suspect]
     Active Substance: HUMAN IMMUNOGLOBULIN G
     Dosage: 12 GRAM, 1/WEEK
  4. ELIQUIS [Concomitant]
     Active Substance: APIXABAN
  5. METOPROLOL [Concomitant]
     Active Substance: METOPROLOL
  6. LEVOTHYROXINE [Concomitant]
     Active Substance: LEVOTHYROXINE
  7. LANSOPRAZOLE [Concomitant]
     Active Substance: LANSOPRAZOLE
  8. IMBRUVICA [Concomitant]
     Active Substance: IBRUTINIB

REACTIONS (11)
  - Spinal cord neoplasm [Unknown]
  - Nerve compression [Not Recovered/Not Resolved]
  - Paralysis [Not Recovered/Not Resolved]
  - Spinal cord haemorrhage [Unknown]
  - Gait inability [Unknown]
  - Back pain [Not Recovered/Not Resolved]
  - Lung disorder [Unknown]
  - Weight increased [Unknown]
  - White blood cell count increased [Unknown]
  - Infusion site mass [Recovered/Resolved]
  - Wheelchair user [Unknown]

NARRATIVE: CASE EVENT DATE: 20240201
